FAERS Safety Report 24416712 (Version 1)
Quarter: 2024Q4

REPORT INFORMATION
  Report Type: Spontaneous
  Country: US (occurrence: US)
  Receive Date: 20241009
  Receipt Date: 20241009
  Transmission Date: 20250115
  Serious: No
  Sender: INSUD PHARMA
  Company Number: US-INSUD PHARMA-2409US07383

PATIENT

DRUGS (2)
  1. SLYND [Suspect]
     Active Substance: DROSPIRENONE
     Indication: Menstrual cycle management
     Dosage: 1 DAILY
     Route: 048
  2. SLYND [Suspect]
     Active Substance: DROSPIRENONE
     Indication: Endometrial thickening

REACTIONS (2)
  - Heavy menstrual bleeding [Unknown]
  - Product prescribing issue [Unknown]
